FAERS Safety Report 13389549 (Version 2)
Quarter: 2017Q2

REPORT INFORMATION
  Report Type: Spontaneous
  Country: FI (occurrence: FI)
  Receive Date: 20170330
  Receipt Date: 20170407
  Transmission Date: 20170830
  Serious: Yes (Disabling)
  Sender: FDA-Public Use
  Company Number: FI-TEVA-753153ISR

PATIENT
  Sex: Male

DRUGS (25)
  1. KALCIPOS-D [Suspect]
     Active Substance: CALCIUM CARBONATE\CHOLECALCIFEROL
     Dosage: 2 DOSAGE FORMS DAILY;
     Route: 048
  2. ROSUVASTATIN ORION [Suspect]
     Active Substance: ROSUVASTATIN
  3. ISMOX [Concomitant]
     Active Substance: ISOSORBIDE MONONITRATE
     Dosage: 10 MILLIGRAM DAILY;
  4. EMCONCOR CHF [Concomitant]
     Active Substance: BISOPROLOL FUMARATE
     Dosage: 1.25 MILLIGRAM DAILY;
  5. TENOX 10 MG [Concomitant]
     Dosage: AS NEEDED 10 MG, MAX. 20 MG/DAY
     Route: 048
  6. SOMAC [Suspect]
     Active Substance: PANTOPRAZOLE SODIUM
     Dosage: 40 MILLIGRAM DAILY; GASTRO-RESITANT TABLET
     Route: 048
  7. KALEORID [Suspect]
     Active Substance: POTASSIUM CHLORIDE
     Dosage: 1 GRAM DAILY;
     Dates: start: 201703
  8. MAREVAN [Concomitant]
     Active Substance: WARFARIN SODIUM
     Dosage: 1.5 MG ON MONDAYS, WEDNESDAYS, FRIDAYS AND SUNDAYS AND 3 MG ON TUESDAYS, THURSDAYS AND SATURDAYS
     Route: 048
     Dates: end: 20170313
  9. SALAZOPYRIN 500 MG [Concomitant]
     Dosage: 1000 MILLIGRAM DAILY;
     Route: 048
     Dates: end: 20170101
  10. PANADOL FORTE 1 G [Concomitant]
     Dosage: MAX 3 G PER DAY WHEN NEEDED
     Route: 048
  11. RISPERIDON SANDOZ 0,5 MG [Concomitant]
     Dosage: .5 MILLIGRAM DAILY; AS NEEDED
     Route: 048
  12. FURESIS [Suspect]
     Active Substance: FUROSEMIDE
     Dosage: 80 MILLIGRAM DAILY;
  13. ROSUVASTATIN ACTAVIS [Suspect]
     Active Substance: ROSUVASTATIN
     Dosage: 5 MILLIGRAM DAILY;
     Dates: end: 20170302
  14. ROSUVASTATIN SANDOZ [Suspect]
     Active Substance: ROSUVASTATIN CALCIUM
  15. MELATONIN 3 MG [Concomitant]
     Dosage: 3 MILLIGRAM DAILY;
  16. DINIT 1,25 MG/DOS [Concomitant]
     Dosage: MOUTHSPRAY, WHEN NEEDED 1 SPARY
  17. SERENASE 2 MG/ML ORAL SUSPENSION [Concomitant]
     Dosage: I.M. OR P.O. WHEN NEEDED 2,5 MG MAX 2 MG/DAY
  18. ATRODUAL 0,5/2,5 MG/DOSE [Concomitant]
     Dosage: AS NEEDED 2,5 ML, MAX 4 ML/DAY
  19. OMEPRAZOLE. [Suspect]
     Active Substance: OMEPRAZOLE
  20. MEMANTINE. [Suspect]
     Active Substance: MEMANTINE
     Dosage: 10 MILLIGRAM DAILY;
  21. TRIKOZOL 400 MG [Concomitant]
     Dosage: 1200 MILLIGRAM DAILY;
     Dates: end: 20170319
  22. PANADOL EXTEND 665 MG [Concomitant]
     Dosage: 1 TABLET MAX 4 TIMES PER DAY WHEN NEEDED
     Route: 048
  23. PERFALGAN [Concomitant]
     Active Substance: ACETAMINOPHEN
     Dosage: WHEN NEEDED 1000 MG (MAX 3000 MG/DAY)
     Route: 042
  24. LORAZEPAM INJECTION USP 2 MG/ML [Concomitant]
     Dosage: 1 MG AS NEEDED MAX. 3 MG/DAY
     Route: 042
  25. AMLODIPINE [Concomitant]
     Active Substance: AMLODIPINE BESYLATE
     Dosage: 10 MILLIGRAM DAILY;

REACTIONS (17)
  - Diarrhoea [Unknown]
  - Memory impairment [Unknown]
  - Confusional state [Unknown]
  - Body temperature decreased [Unknown]
  - Proteinuria [Unknown]
  - Rash [Unknown]
  - Pleural effusion [Unknown]
  - Headache [Unknown]
  - Urinary retention [Unknown]
  - Urinary tract infection [Unknown]
  - Pyelonephritis [Unknown]
  - Dyspnoea [Unknown]
  - Pruritus [Unknown]
  - Dizziness [Unknown]
  - Lung infection [Unknown]
  - Blood urine [Unknown]
  - Pyrexia [Unknown]
